FAERS Safety Report 4445759-2 (Version None)
Quarter: 2004Q3

REPORT INFORMATION
  Report Type: 
  Country: None (occurrence: None)
  Receive Date: 20040902
  Receipt Date: 20040820
  Transmission Date: 20050211
  Serious: Yes (Hospitalization)
  Sender: FDA-Public Use
  Company Number: PERI00204002859

PATIENT
  Age: 62 Year
  Sex: Male

DRUGS (6)
  1. COVERSYL (PERINDOPRIL) [Suspect]
     Dosage: 14 DF ONCE PO
     Route: 048
     Dates: start: 20040605, end: 20040605
  2. DIGOXIN [Suspect]
     Dosage: 18 DF ONCE PO
     Route: 048
     Dates: start: 20040605, end: 20040605
  3. PREVISCAN (FLUINDIONE) [Concomitant]
     Dosage: 4 DF ONCE PO
     Route: 048
     Dates: start: 20040605, end: 20040605
  4. PREDNISONE [Suspect]
     Dosage: 14 DF ONCE PO
     Route: 048
     Dates: start: 20040605, end: 20040605
  5. FUROSEMIDE [Suspect]
     Dosage: 19 DF ONCE PO
     Route: 048
     Dates: start: 20040605, end: 20040605
  6. AMIODARONE HCL [Suspect]
     Dosage: 18 DF ONCE PO
     Route: 048
     Dates: start: 20040605, end: 20040605

REACTIONS (5)
  - BRADYCARDIA [None]
  - HYPOTENSION [None]
  - INTERNATIONAL NORMALISED RATIO DECREASED [None]
  - INTERNATIONAL NORMALISED RATIO INCREASED [None]
  - MULTIPLE DRUG OVERDOSE INTENTIONAL [None]
